FAERS Safety Report 20245271 (Version 1)
Quarter: 2021Q4

REPORT INFORMATION
  Report Type: Spontaneous
  Country: CA (occurrence: CA)
  Receive Date: 20211229
  Receipt Date: 20211229
  Transmission Date: 20220303
  Serious: Yes (Death)
  Sender: FDA-Public Use
  Company Number: CA-PFIZER INC-202101138577

PATIENT
  Age: 79 Year
  Sex: Female
  Weight: 118 kg

DRUGS (3)
  1. IBRANCE [Suspect]
     Active Substance: PALBOCICLIB
     Dosage: 100 MG, CYCLIC TAKE ONCE DAILY FOR 21 DAYS OUT OF A 28 DAY CYCLE
     Route: 048
  2. METOCLOPRAMIDE [Concomitant]
     Active Substance: METOCLOPRAMIDE
     Dosage: 10 MG, AS NEEDED. Q4 - 6H. PRN
     Route: 048
     Dates: start: 20210826
  3. LETROZOLE [Concomitant]
     Active Substance: LETROZOLE
     Dosage: 2.5 MG, 1X/DAY. 28 DAYS
     Route: 048
     Dates: start: 20210826

REACTIONS (1)
  - Death [Fatal]

NARRATIVE: CASE EVENT DATE: 20211204
